FAERS Safety Report 4415633-6 (Version None)
Quarter: 2004Q2

REPORT INFORMATION
  Report Type: 
  Country: None (occurrence: None)
  Receive Date: 20040630
  Receipt Date: 20040126
  Transmission Date: 20050107
  Serious: Yes (Life-Threatening)
  Sender: FDA-Public Use
  Company Number: 2004005432

PATIENT
  Age: 49 Year
  Sex: Male

DRUGS (1)
  1. ZOLOFT [Suspect]
     Indication: ILL-DEFINED DISORDER
     Dates: start: 20020212

REACTIONS (3)
  - AGGRESSION [None]
  - PHYSICAL ASSAULT [None]
  - SUICIDAL IDEATION [None]
